FAERS Safety Report 4749224-4 (Version None)
Quarter: 2005Q3

REPORT INFORMATION
  Report Type: 
  Country: None (occurrence: None)
  Receive Date: 20050812
  Receipt Date: 20050422
  Transmission Date: 20060218
  Serious: Yes (Other)
  Sender: FDA-Public Use
  Company Number: 402983

PATIENT
  Age: 48 Year
  Sex: Female
  Weight: 68.9 kg

DRUGS (5)
  1. PEGASYS [Suspect]
     Indication: HEPATITIS C VIRUS
     Dosage: 180 MCG 1 PER WEEK SUBCUTANEOUS
     Route: 058
     Dates: start: 20050218
  2. COPEGUS [Suspect]
     Indication: HEPATITIS C VIRUS
     Dosage: 1000 MG DAILY 2 PER DAY ORAL
     Route: 048
     Dates: start: 20050218
  3. MOBIC [Concomitant]
  4. INSULIN [Concomitant]
  5. VASOTEC [Concomitant]

REACTIONS (4)
  - BLOOD GLUCOSE INCREASED [None]
  - CHILLS [None]
  - MYALGIA [None]
  - PYREXIA [None]
